FAERS Safety Report 8811050 (Version 1)
Quarter: 2012Q4

REPORT INFORMATION
  Report Type: Spontaneous
  Country: US (occurrence: None)
  Receive Date: 20120924
  Receipt Date: 20120924
  Transmission Date: 20130627
  Serious: Yes (Hospitalization)
  Sender: FDA-Public Use
  Company Number: None

PATIENT
  Age: 80 Year
  Sex: Male
  Weight: 70 kg

DRUGS (1)
  1. ZOSYN [Suspect]
     Indication: INFECTION
     Route: 042
     Dates: start: 20111228, end: 20120117

REACTIONS (3)
  - Stevens-Johnson syndrome [None]
  - Toxic epidermal necrolysis [None]
  - Skin exfoliation [None]
